FAERS Safety Report 24848046 (Version 2)
Quarter: 2025Q1

REPORT INFORMATION
  Report Type: Spontaneous
  Country: US (occurrence: US)
  Receive Date: 20250116
  Receipt Date: 20250123
  Transmission Date: 20250409
  Serious: Yes (Hospitalization, Other)
  Sender: ALKEM
  Company Number: None

PATIENT
  Age: 58 Year
  Sex: Male

DRUGS (2)
  1. TACROLIMUS [Suspect]
     Active Substance: TACROLIMUS
     Indication: Immunosuppressant drug therapy
     Dosage: 10 MILLIGRAM, BID (EVERY 12 HOUR)
     Route: 065
  2. ASPIRIN [Suspect]
     Active Substance: ASPIRIN
     Indication: Product used for unknown indication
     Dosage: 81 MILLIGRAM, QID (4 TIMES A DAY)
     Route: 065

REACTIONS (3)
  - Gastrointestinal tract adenoma [Recovering/Resolving]
  - Lymphangiectasia intestinal [Recovering/Resolving]
  - Upper gastrointestinal haemorrhage [Recovered/Resolved]
